FAERS Safety Report 7299669-6 (Version None)
Quarter: 2011Q1

REPORT INFORMATION
  Report Type: 
  Country: None (occurrence: None)
  Receive Date: 20110217
  Receipt Date: 20110208
  Transmission Date: 20110831
  Serious: Yes (Hospitalization, Disabling)
  Sender: FDA-Public Use
  Company Number: US-ASTRAZENECA-2011SE07905

PATIENT
  Sex: Male

DRUGS (5)
  1. TOPROL-XL [Suspect]
     Route: 048
  2. CRESTOR [Suspect]
     Route: 048
  3. COUMADIN [Concomitant]
  4. NEXIUM [Concomitant]
  5. SEROQUEL [Concomitant]

REACTIONS (4)
  - COLON OPERATION [None]
  - HALLUCINATION [None]
  - PARALYSIS [None]
  - MUSCLE SPASMS [None]
